FAERS Safety Report 8762621 (Version 2)
Quarter: 2012Q4

REPORT INFORMATION
  Report Type: 
  Country: US (occurrence: US)
  Receive Date: 20120830
  Receipt Date: 20120924
  Transmission Date: 20130627
  Serious: Yes (Death)
  Sender: FDA-Public Use
  Company Number: US-ROCHE-1106360

PATIENT
  Sex: Male

DRUGS (4)
  1. TARCEVA [Suspect]
     Indication: GALLBLADDER CANCER
  2. TARCEVA [Suspect]
     Indication: BILE DUCT CANCER
  3. AVASTIN [Suspect]
     Indication: BILE DUCT CANCER
  4. AVASTIN [Suspect]
     Indication: GALLBLADDER CANCER

REACTIONS (1)
  - Death [Fatal]
